FAERS Safety Report 16096235 (Version 2)
Quarter: 2019Q1

REPORT INFORMATION
  Report Type: Report from Study
  Country: US (occurrence: US)
  Receive Date: 20190320
  Receipt Date: 20190329
  Transmission Date: 20190418
  Serious: Yes (Hospitalization, Other)
  Sender: FDA-Public Use
  Company Number: US-EMD SERONO-9076966

PATIENT
  Age: 68 Year
  Sex: Female

DRUGS (1)
  1. REBIF [Suspect]
     Active Substance: INTERFERON BETA-1A
     Indication: MULTIPLE SCLEROSIS
     Route: 058
     Dates: start: 20180904

REACTIONS (11)
  - Transient ischaemic attack [Unknown]
  - Hypoaesthesia [Unknown]
  - Fall [Unknown]
  - Soft tissue infection [Unknown]
  - Ligament injury [Unknown]
  - Paraesthesia [Unknown]
  - Viral infection [Unknown]
  - White blood cell count increased [Unknown]
  - Urinary tract infection [Unknown]
  - Joint injury [Unknown]
  - Staphylococcal infection [Unknown]

NARRATIVE: CASE EVENT DATE: 2019
